FAERS Safety Report 15864202 (Version 1)
Quarter: 2019Q1

REPORT INFORMATION
  Report Type: Spontaneous
  Country: DE (occurrence: DE)
  Receive Date: 20190124
  Receipt Date: 20190124
  Transmission Date: 20190417
  Serious: Yes (Other)
  Sender: FDA-Public Use
  Company Number: DE-PFIZER INC-2019029048

PATIENT

DRUGS (3)
  1. METHOTREXATE SODIUM. [Suspect]
     Active Substance: METHOTREXATE SODIUM
     Dosage: 10 MG, WEEKLY
  2. HUMIRA [Concomitant]
     Active Substance: ADALIMUMAB
  3. METHOTREXATE SODIUM. [Suspect]
     Active Substance: METHOTREXATE SODIUM
     Dosage: UP TO 22.5 WEEKLY
     Dates: start: 2011, end: 2013

REACTIONS (10)
  - Stomatitis [Unknown]
  - Parotid gland enlargement [Unknown]
  - Tenosynovitis [Unknown]
  - Arthritis [Unknown]
  - Sjogren^s syndrome [Unknown]
  - Pleurisy [Unknown]
  - Oral pain [Unknown]
  - Lymphadenopathy [Unknown]
  - Temporomandibular joint syndrome [Unknown]
  - Arthralgia [Unknown]

NARRATIVE: CASE EVENT DATE: 2011
